FAERS Safety Report 4641336-9 (Version None)
Quarter: 2005Q2

REPORT INFORMATION
  Report Type: 
  Country: None (occurrence: None)
  Receive Date: 20050420
  Receipt Date: 20050420
  Transmission Date: 20051028
  Serious: Yes (Hospitalization)
  Sender: FDA-Public Use
  Company Number: None

PATIENT

DRUGS (2)
  1. ASPIRIN [Suspect]
     Dosage: 325 PO QD
     Route: 048
  2. IBUPROFEN [Suspect]
     Dosage: 800 MG PO TID
     Route: 048

REACTIONS (3)
  - ASTHENIA [None]
  - DIZZINESS [None]
  - LOWER GASTROINTESTINAL HAEMORRHAGE [None]
